FAERS Safety Report 15654051 (Version 1)
Quarter: 2018Q4

REPORT INFORMATION
  Report Type: Spontaneous
  Country: US (occurrence: US)
  Receive Date: 20181124
  Receipt Date: 20181124
  Transmission Date: 20190205
  Serious: Yes (Other)
  Sender: FDA-Public Use
  Company Number: None

PATIENT
  Age: 64 Year
  Sex: Female
  Weight: 147.15 kg

DRUGS (23)
  1. FUROSEMIDE. [Concomitant]
     Active Substance: FUROSEMIDE
  2. LORATADINE. [Concomitant]
     Active Substance: LORATADINE
  3. MAGNESIUM TAURATE [Concomitant]
  4. CICLOPIRIX [Concomitant]
  5. FISH OIL [Concomitant]
     Active Substance: FISH OIL
  6. L-METHYLFOLATE [Concomitant]
     Active Substance: LEVOMEFOLIC ACID
  7. ZETIA [Concomitant]
     Active Substance: EZETIMIBE
  8. SOTALOL. [Concomitant]
     Active Substance: SOTALOL
  9. VITAMIN D3 [Concomitant]
     Active Substance: CHOLECALCIFEROL
  10. RESTASIS [Concomitant]
     Active Substance: CYCLOSPORINE
  11. SPIRONOLACTONE. [Concomitant]
     Active Substance: SPIRONOLACTONE
  12. TRAZODONE [Concomitant]
     Active Substance: TRAZODONE HYDROCHLORIDE
  13. XARELTO [Concomitant]
     Active Substance: RIVAROXABAN
  14. METHYL B12 [Concomitant]
  15. DIGOXIN. [Concomitant]
     Active Substance: DIGOXIN
  16. NALTREXONE [Concomitant]
     Active Substance: NALTREXONE
  17. TRAMADOL HCL [Concomitant]
     Active Substance: TRAMADOL HYDROCHLORIDE
  18. XANAX [Concomitant]
     Active Substance: ALPRAZOLAM
  19. MELATONIN [Concomitant]
     Active Substance: MELATONIN
  20. VITAMIN C [Concomitant]
     Active Substance: ASCORBIC ACID
  21. MONTELUKAST [Suspect]
     Active Substance: MONTELUKAST SODIUM
     Indication: MAST CELL ACTIVATION SYNDROME
     Route: 048
     Dates: start: 20160101, end: 20180601
  22. BACLOFEN. [Concomitant]
     Active Substance: BACLOFEN
  23. TYLENOL [Concomitant]
     Active Substance: ACETAMINOPHEN

REACTIONS (4)
  - Therapy cessation [None]
  - Feeling of despair [None]
  - Depression [None]
  - Suicidal ideation [None]

NARRATIVE: CASE EVENT DATE: 20170101
